FAERS Safety Report 11860419 (Version 6)
Quarter: 2016Q1

REPORT INFORMATION
  Report Type: Report from Study
  Country: US (occurrence: US)
  Receive Date: 20151222
  Receipt Date: 20160310
  Transmission Date: 20160526
  Serious: Yes (Hospitalization, Other)
  Sender: FDA-Public Use
  Company Number: US-GILEAD-2015-0189091

PATIENT
  Age: 60 Year
  Sex: Female
  Weight: 63.95 kg

DRUGS (4)
  1. AMBRISENTAN [Suspect]
     Active Substance: AMBRISENTAN
     Indication: PRODUCT USED FOR UNKNOWN INDICATION
     Dosage: 5 MG, QD
     Route: 065
     Dates: start: 20150916
  2. REMODULIN [Suspect]
     Active Substance: TREPROSTINIL
     Indication: PRODUCT USED FOR UNKNOWN INDICATION
     Dosage: 89 NG/KG
     Route: 058
     Dates: start: 20131211
  3. REMODULIN [Suspect]
     Active Substance: TREPROSTINIL
     Dosage: 85 NG/KG
     Route: 058
  4. ADEMPAS [Concomitant]
     Active Substance: RIOCIGUAT
     Indication: PRODUCT USED FOR UNKNOWN INDICATION
     Route: 065

REACTIONS (9)
  - Bone pain [Unknown]
  - Unevaluable event [Unknown]
  - Migraine [Recovered/Resolved]
  - Pneumonia [Unknown]
  - Migraine [Unknown]
  - Dizziness [Unknown]
  - Myalgia [Unknown]
  - Vomiting [Unknown]
  - Pain [Unknown]
